FAERS Safety Report 6618410-0 (Version None)
Quarter: 2010Q1

REPORT INFORMATION
  Report Type: 
  Country: None (occurrence: None)
  Receive Date: 20100308
  Receipt Date: 20100301
  Transmission Date: 20100710
  Serious: Yes (Other)
  Sender: FDA-Public Use
  Company Number: B0636800A

PATIENT
  Sex: Male

DRUGS (2)
  1. SERETIDE [Suspect]
  2. SALBUTAMOL [Concomitant]

REACTIONS (1)
  - ADRENAL SUPPRESSION [None]
